APPROVED DRUG PRODUCT: PEDMARK
Active Ingredient: SODIUM THIOSULFATE
Strength: 12.5GM/100ML (125MG/ML)
Dosage Form/Route: SOLUTION;INTRAVENOUS
Application: N212937 | Product #001
Applicant: FENNEC PHARMACEUTICALS INC
Approved: Sep 20, 2022 | RLD: Yes | RS: Yes | Type: RX

PATENTS:
Patent 11998604 | Expires: Jul 1, 2039
Patent 11992530 | Expires: Jul 1, 2039
Patent 11964018 | Expires: Jul 1, 2039
Patent 10596190 | Expires: Jan 5, 2038
Patent 11617793 | Expires: Jul 1, 2039
Patent 11510984 | Expires: Jul 1, 2039
Patent 11291728 | Expires: Jul 1, 2039

EXCLUSIVITY:
Code: ODE-384 | Date: Sep 20, 2029